FAERS Safety Report 6280191-0 (Version None)
Quarter: 2009Q3

REPORT INFORMATION
  Report Type: 
  Country: None (occurrence: None)
  Receive Date: 20090723
  Receipt Date: 20090715
  Transmission Date: 20100115
  Serious: Yes (Other)
  Sender: FDA-Public Use
  Company Number: US-AMGEN-QUU356180

PATIENT
  Sex: Female

DRUGS (1)
  1. ENBREL [Suspect]
     Indication: RHEUMATOID ARTHRITIS
     Route: 058
     Dates: start: 19980101

REACTIONS (7)
  - ARTHRALGIA [None]
  - FATIGUE [None]
  - FIBROCYSTIC BREAST DISEASE [None]
  - INJECTION SITE IRRITATION [None]
  - JOINT INJURY [None]
  - NODULE [None]
  - SWELLING [None]
